FAERS Safety Report 13379354 (Version 1)
Quarter: 2017Q1

REPORT INFORMATION
  Report Type: Spontaneous
  Country: US (occurrence: US)
  Receive Date: 20170328
  Receipt Date: 20170328
  Transmission Date: 20170429
  Serious: No
  Sender: FDA-Public Use
  Company Number: US-ROCHE-1093234

PATIENT
  Age: 55 Year
  Sex: Female
  Weight: 57.2 kg

DRUGS (6)
  1. XOLAIR [Suspect]
     Active Substance: OMALIZUMAB
     Indication: ASTHMA
     Route: 058
     Dates: start: 20120608, end: 20120710
  2. SYMBICORT [Concomitant]
     Active Substance: BUDESONIDE\FORMOTEROL FUMARATE DIHYDRATE
     Indication: ASTHMA
     Dosage: 2 PUFF
     Route: 055
  3. DICLOFENAC [Concomitant]
     Active Substance: DICLOFENAC
  4. BONIVA [Concomitant]
     Active Substance: IBANDRONATE SODIUM
     Indication: OSTEOPOROSIS
  5. ALBUTEROL. [Concomitant]
     Active Substance: ALBUTEROL
     Dosage: 2 PUFF PRN
     Route: 065
  6. RITUXAN [Concomitant]
     Active Substance: RITUXIMAB
     Indication: SJOGREN^S SYNDROME
     Route: 065

REACTIONS (5)
  - Arthralgia [Unknown]
  - Musculoskeletal pain [Recovered/Resolved]
  - Headache [Unknown]
  - Nausea [Unknown]
  - Sinusitis [Not Recovered/Not Resolved]

NARRATIVE: CASE EVENT DATE: 20120609
